FAERS Safety Report 4388807-0 (Version None)
Quarter: 2004Q3

REPORT INFORMATION
  Report Type: 
  Country: None (occurrence: None)
  Receive Date: 20040701
  Receipt Date: 20030929
  Transmission Date: 20050211
  Serious: Yes (Other)
  Sender: FDA-Public Use
  Company Number: US-MERCK-0310USA00100

PATIENT
  Sex: Female
  Weight: 68 kg

DRUGS (2)
  1. VIOXX [Suspect]
     Route: 048
  2. EFFEXOR [Concomitant]
     Indication: DEPRESSION
     Route: 065

REACTIONS (22)
  - ANGIOPATHY [None]
  - CARDIAC DISORDER [None]
  - CARDIAC MURMUR [None]
  - CARDIOMEGALY [None]
  - CHEST PAIN [None]
  - CONVULSION [None]
  - DEEP VEIN THROMBOSIS [None]
  - DEPRESSION [None]
  - EYE HAEMORRHAGE [None]
  - GALLBLADDER DISORDER [None]
  - GASTROINTESTINAL DISORDER [None]
  - HYPERCHOLESTEROLAEMIA [None]
  - HYPERTENSION [None]
  - IMMUNE SYSTEM DISORDER [None]
  - KIDNEY INFECTION [None]
  - LUNG DISORDER [None]
  - MIGRAINE [None]
  - PARATHYROID DISORDER [None]
  - PERICARDIAL EFFUSION [None]
  - THYROID DISORDER [None]
  - URINARY INCONTINENCE [None]
  - UTERINE DISORDER [None]
